FAERS Safety Report 11893533 (Version 1)
Quarter: 2016Q1

REPORT INFORMATION
  Report Type: Spontaneous
  Country: GR (occurrence: GR)
  Receive Date: 20160106
  Receipt Date: 20160106
  Transmission Date: 20160526
  Serious: Yes (Other)
  Sender: FDA-Public Use
  Company Number: GR-PFIZER INC-2016001606

PATIENT
  Sex: Female

DRUGS (4)
  1. MOTOFEN /01293201/ [Suspect]
     Active Substance: MIRTAZAPINE
     Dosage: UNK
     Dates: start: 201511
  2. THYROHORMONE [Concomitant]
     Indication: HYPOTHYROIDISM
     Dosage: UNK
  3. VERPIR [Suspect]
     Active Substance: ACYCLOVIR
     Dosage: UNK
     Dates: start: 201511
  4. XANAX [Suspect]
     Active Substance: ALPRAZOLAM
     Dosage: UNK
     Dates: start: 201511

REACTIONS (4)
  - Confusional state [Unknown]
  - Hallucination [Unknown]
  - Soliloquy [Unknown]
  - Abnormal dreams [Unknown]
